FAERS Safety Report 11446414 (Version 2)
Quarter: 2015Q3

REPORT INFORMATION
  Report Type: Spontaneous
  Country: US (occurrence: US)
  Receive Date: 20150902
  Receipt Date: 20150903
  Transmission Date: 20151125
  Serious: No
  Sender: FDA-Public Use
  Company Number: US-009507513-1509USA001100

PATIENT
  Age: 24 Year
  Sex: Female
  Weight: 79.37 kg

DRUGS (1)
  1. NEXPLANON [Suspect]
     Active Substance: ETONOGESTREL
     Indication: CONTRACEPTION
     Dosage: DOSE/FREQUENCY: ^EVERY 3 YEARS^
     Route: 059
     Dates: start: 20150331

REACTIONS (3)
  - Pruritus [Unknown]
  - Irritability [Unknown]
  - Device kink [Not Recovered/Not Resolved]

NARRATIVE: CASE EVENT DATE: 2015
